FAERS Safety Report 10813613 (Version 1)
Quarter: 2015Q1

REPORT INFORMATION
  Report Type: Spontaneous
  Country: FR (occurrence: FR)
  Receive Date: 20150218
  Receipt Date: 20150218
  Transmission Date: 20150721
  Serious: Yes (Life-Threatening, Hospitalization)
  Sender: FDA-Public Use
  Company Number: PHHY2015FR019184

PATIENT
  Age: 40 Year
  Sex: Female

DRUGS (2)
  1. ARTESUNATE [Suspect]
     Active Substance: ARTESUNATE
     Indication: MALARIA
     Dosage: UNK
     Route: 042
     Dates: start: 20150108, end: 20150110
  2. RIAMET [Suspect]
     Active Substance: ARTEMETHER\LUMEFANTRINE
     Indication: MALARIA
     Dosage: UNK
     Route: 048
     Dates: start: 20150111, end: 20150114

REACTIONS (1)
  - Autoimmune haemolytic anaemia [Not Recovered/Not Resolved]

NARRATIVE: CASE EVENT DATE: 20150126
